FAERS Safety Report 5334650-5 (Version None)
Quarter: 2007Q2

REPORT INFORMATION
  Report Type: 
  Country: None (occurrence: None)
  Receive Date: 20070525
  Receipt Date: 20070515
  Transmission Date: 20071010
  Serious: Yes (Death, Hospitalization)
  Sender: FDA-Public Use
  Company Number: B0468673A

PATIENT
  Age: 57 Year
  Sex: Male

DRUGS (2)
  1. LAMIVUDINE [Suspect]
     Dosage: 100MG PER DAY
     Route: 065
     Dates: start: 20011201
  2. INTERFERON ALPHA [Suspect]
     Route: 065

REACTIONS (9)
  - ALANINE AMINOTRANSFERASE INCREASED [None]
  - BLOOD BILIRUBIN INCREASED [None]
  - HBV DNA INCREASED [None]
  - HEPATIC FAILURE [None]
  - HEPATITIS B [None]
  - JAUNDICE [None]
  - OCULAR ICTERUS [None]
  - OESOPHAGEAL VARICES HAEMORRHAGE [None]
  - VIRAL HEPATITIS CARRIER [None]
